FAERS Safety Report 23481543 (Version 1)
Quarter: 2024Q1

REPORT INFORMATION
  Report Type: Spontaneous
  Country: US (occurrence: None)
  Receive Date: 20240202
  Receipt Date: 20240202
  Transmission Date: 20240410
  Serious: Yes (Disabling, Other)
  Sender: FDA-Public Use
  Company Number: None

PATIENT
  Age: 15 Year
  Sex: Male
  Weight: 59.85 kg

DRUGS (5)
  1. TROPICAMIDE [Suspect]
     Active Substance: TROPICAMIDE
     Indication: Mydriasis
     Dosage: OTHER FREQUENCY : ONE TIME ADMINISTR;?
     Route: 047
     Dates: start: 20240122, end: 20240122
  2. VITAMINS [Concomitant]
     Active Substance: VITAMINS
  3. VITAMIN C [Concomitant]
     Active Substance: ASCORBIC ACID
  4. PROBIOTICS NOS [Concomitant]
     Active Substance: PROBIOTICS NOS
  5. NAC [Concomitant]

REACTIONS (8)
  - Syncope [None]
  - Seizure [None]
  - Blood pressure decreased [None]
  - Blood pressure increased [None]
  - Myalgia [None]
  - Photosensitivity reaction [None]
  - Abnormal sensation in eye [None]
  - Loss of consciousness [None]

NARRATIVE: CASE EVENT DATE: 20240122
